FAERS Safety Report 5248628-3 (Version None)
Quarter: 2007Q1

REPORT INFORMATION
  Report Type: 
  Country: None (occurrence: None)
  Receive Date: 20070222
  Receipt Date: 20070209
  Transmission Date: 20070707
  Serious: No
  Sender: FDA-Public Use
  Company Number: TPA2007A00270

PATIENT
  Age: 59 Year
  Sex: Male
  Weight: 108.8633 kg

DRUGS (7)
  1. ROZEREM [Suspect]
     Indication: INSOMNIA
     Dosage: SEE IMAGE, PER ORAL
     Route: 048
     Dates: start: 20070131, end: 20070208
  2. ROZEREM [Suspect]
     Indication: INSOMNIA
     Dosage: SEE IMAGE, PER ORAL
     Route: 048
     Dates: start: 20070208
  3. OXYCONTIN [Concomitant]
  4. ZOLOFT [Concomitant]
  5. TAMSULOSIN HCL [Concomitant]
  6. UNKNOWN WATER PILLS (CAFFEINE, AMMONIUM CHLORIDE) (PILL) [Concomitant]
  7. LISINOPRIL [Concomitant]

REACTIONS (5)
  - DRUG INEFFECTIVE [None]
  - FATIGUE [None]
  - INSOMNIA [None]
  - SLEEP DISORDER [None]
  - TREATMENT NONCOMPLIANCE [None]
